FAERS Safety Report 6591370-7 (Version None)
Quarter: 2010Q1

REPORT INFORMATION
  Report Type: 
  Country: None (occurrence: None)
  Receive Date: 20100219
  Receipt Date: 20100211
  Transmission Date: 20100710
  Serious: Yes (Other)
  Sender: FDA-Public Use
  Company Number: US-PFIZER INC-2010018677

PATIENT
  Sex: Female
  Weight: 73 kg

DRUGS (1)
  1. AROMASIN [Suspect]
     Indication: NEOPLASM MALIGNANT
     Dosage: 25 MG, 1X/DAY
     Route: 048
     Dates: start: 20090101

REACTIONS (5)
  - ARTHRALGIA [None]
  - BACK DISORDER [None]
  - OSTEOPOROSIS [None]
  - PAIN IN EXTREMITY [None]
  - SKIN DISCOLOURATION [None]
